FAERS Safety Report 9421908 (Version 1)
Quarter: 2013Q3

REPORT INFORMATION
  Report Type: Spontaneous
  Country: US (occurrence: US)
  Receive Date: 20130726
  Receipt Date: 20130726
  Transmission Date: 20140515
  Serious: No
  Sender: FDA-Public Use
  Company Number: US-PFIZER INC-2013213672

PATIENT
  Sex: Female

DRUGS (2)
  1. CYTOMEL [Suspect]
     Dosage: 110 UG, UNK
     Dates: start: 2008
  2. CYTOMEL [Suspect]
     Dosage: 5 UG, UNK

REACTIONS (3)
  - Drug ineffective [Unknown]
  - Paraesthesia [Unknown]
  - Hypothyroidism [Unknown]
